FAERS Safety Report 22253916 (Version 3)
Quarter: 2023Q2

REPORT INFORMATION
  Report Type: Spontaneous
  Country: JP (occurrence: JP)
  Receive Date: 20230426
  Receipt Date: 20230602
  Transmission Date: 20230721
  Serious: Yes (Other)
  Sender: FDA-Public Use
  Company Number: JP-ASTELLAS-2023JP004984

PATIENT
  Age: 83 Year
  Sex: Female

DRUGS (1)
  1. MICAFUNGIN SODIUM [Suspect]
     Active Substance: MICAFUNGIN SODIUM
     Indication: Fungal infection
     Dosage: UNK UNK, UNKNOWN FREQ.
     Route: 041

REACTIONS (1)
  - Pancytopenia [Recovered/Resolved]
